FAERS Safety Report 25199244 (Version 1)
Quarter: 2025Q2

REPORT INFORMATION
  Report Type: Spontaneous
  Country: NL (occurrence: NL)
  Receive Date: 20250415
  Receipt Date: 20250415
  Transmission Date: 20250716
  Serious: Yes (Hospitalization)
  Sender: TEVA
  Company Number: None

PATIENT
  Age: 74 Year
  Sex: Female
  Weight: 60 kg

DRUGS (6)
  1. TAMSULOSIN [Suspect]
     Active Substance: TAMSULOSIN
     Indication: Bladder disorder
     Dosage: 1 PIECE PER DAY, BRAND NAME NOT SPECIFIED
     Route: 048
     Dates: start: 20241219, end: 20250217
  2. MIRABEGRON [Suspect]
     Active Substance: MIRABEGRON
     Indication: Urge incontinence
     Dosage: 1 PIECE ONCE A DAY
     Route: 048
     Dates: start: 20241219, end: 20250217
  3. DENOSUMAB [Concomitant]
     Active Substance: DENOSUMAB
     Indication: Product used for unknown indication
     Route: 065
  4. AGIOLAX [Concomitant]
     Indication: Product used for unknown indication
     Route: 048
  5. PANTOPRAZOLE SODIUM [Concomitant]
     Active Substance: PANTOPRAZOLE SODIUM
     Indication: Product used for unknown indication
     Route: 048
  6. LIVSANE PARACETAMOL [Concomitant]
     Indication: Product used for unknown indication
     Route: 048

REACTIONS (3)
  - Dehydration [Recovered/Resolved]
  - Vomiting [Recovered/Resolved]
  - Nausea [Recovered/Resolved]

NARRATIVE: CASE EVENT DATE: 20250101
